FAERS Safety Report 5112584-9 (Version None)
Quarter: 2006Q3

REPORT INFORMATION
  Report Type: 
  Country: None (occurrence: None)
  Receive Date: 20060802
  Receipt Date: 20060524
  Transmission Date: 20061208
  Serious: No
  Sender: FDA-Public Use
  Company Number: 200614821US

PATIENT
  Sex: Female

DRUGS (1)
  1. KETEK [Suspect]
     Indication: BACTERIAL INFECTION
     Dosage: PO
     Route: 048
     Dates: start: 20060523

REACTIONS (1)
  - DIARRHOEA [None]
